FAERS Safety Report 20018977 (Version 4)
Quarter: 2022Q1

REPORT INFORMATION
  Report Type: Report from Study
  Country: US (occurrence: US)
  Receive Date: 20211101
  Receipt Date: 20220307
  Transmission Date: 20220423
  Serious: Yes (Hospitalization)
  Sender: FDA-Public Use
  Company Number: US-INSMED, INC.-2021-09882-US

PATIENT
  Sex: Female

DRUGS (2)
  1. ARIKAYCE [Suspect]
     Active Substance: AMIKACIN
     Indication: Mycobacterium avium complex infection
     Dosage: 590 MILLIGRAM, QD
     Route: 055
     Dates: start: 20210902, end: 2021
  2. AMIKACIN [Concomitant]
     Active Substance: AMIKACIN
     Indication: Infection
     Dosage: UNK
     Route: 042
     Dates: start: 20211124

REACTIONS (5)
  - Hospitalisation [Unknown]
  - Hospitalisation [Unknown]
  - Mycobacterium avium complex infection [Unknown]
  - Drug ineffective [Unknown]
  - Therapy interrupted [Unknown]
